FAERS Safety Report 22529217 (Version 1)
Quarter: 2023Q2

REPORT INFORMATION
  Report Type: Other
  Country: ES (occurrence: None)
  Receive Date: 20230607
  Receipt Date: 20230607
  Transmission Date: 20230722
  Serious: Yes (Other)
  Sender: FDA-Public Use
  Company Number: ES-ROCHE-3360796

PATIENT

DRUGS (1)
  1. ATEZOLIZUMAB [Suspect]
     Active Substance: ATEZOLIZUMAB
     Indication: Bladder cancer
     Route: 041

REACTIONS (7)
  - Hyperthyroidism [Unknown]
  - Nephritis [Unknown]
  - Hepatitis [Unknown]
  - Pruritus [Unknown]
  - Asthenia [Unknown]
  - Anaemia [Unknown]
  - Constipation [Unknown]
